FAERS Safety Report 6869720-3 (Version None)
Quarter: 2010Q3

REPORT INFORMATION
  Report Type: 
  Country: None (occurrence: None)
  Receive Date: 20100722
  Receipt Date: 20081015
  Transmission Date: 20110219
  Serious: Yes (Death, Other)
  Sender: FDA-Public Use
  Company Number: US-PFIZER INC-2008067699

PATIENT
  Sex: Male
  Weight: 115.2 kg

DRUGS (1)
  1. CHANTIX [Suspect]
     Indication: SMOKING CESSATION THERAPY
     Dosage: 1MG BID EVERYDAY TDD:2MG
     Dates: start: 20080501, end: 20080701

REACTIONS (3)
  - ABNORMAL DREAMS [None]
  - COMPLETED SUICIDE [None]
  - HYPERTENSION [None]
